FAERS Safety Report 4966968-X (Version None)
Quarter: 2006Q2

REPORT INFORMATION
  Report Type: 
  Country: None (occurrence: None)
  Receive Date: 20060403
  Receipt Date: 20060321
  Transmission Date: 20061013
  Serious: Yes (Hospitalization)
  Sender: FDA-Public Use
  Company Number: 2005067523

PATIENT
  Age: 46 Year
  Sex: Male

DRUGS (10)
  1. LITHIUM (LITHIUM) [Suspect]
     Indication: HYPOMANIA
     Dosage: 900 MG
     Dates: start: 20040209, end: 20041026
  2. ATENOLOL [Suspect]
     Indication: HYPERTENSION
     Dosage: 100 MG
     Dates: end: 20041029
  3. LISINOPRIL [Suspect]
     Indication: HYPERTENSION
     Dates: start: 20040810, end: 20041026
  4. FOSINOPRIL [Concomitant]
  5. HALOPERIDOL [Concomitant]
  6. BENZTROPINE MESYLATE [Concomitant]
  7. OLANZAPINE [Concomitant]
  8. CLONAZEPAM [Concomitant]
  9. DIVALPROEX (VALPROIC ACID) [Concomitant]
  10. SIMVASTATIN [Concomitant]

REACTIONS (13)
  - BLOOD CREATININE INCREASED [None]
  - BLOOD POTASSIUM INCREASED [None]
  - BRADYCARDIA [None]
  - DRUG INTERACTION [None]
  - DRUG LEVEL DECREASED [None]
  - DRUG LEVEL INCREASED [None]
  - DRUG TOXICITY [None]
  - RENAL IMPAIRMENT [None]
  - SALIVARY HYPERSECRETION [None]
  - SEDATION [None]
  - THERAPY NON-RESPONDER [None]
  - TREATMENT NONCOMPLIANCE [None]
  - TREMOR [None]
